FAERS Safety Report 13935047 (Version 4)
Quarter: 2018Q1

REPORT INFORMATION
  Report Type: Report from Study
  Country: IT (occurrence: IT)
  Receive Date: 20170905
  Receipt Date: 20180321
  Transmission Date: 20180508
  Serious: Yes (Hospitalization, Other)
  Sender: FDA-Public Use
  Company Number: IT-ACCORD-057930

PATIENT
  Age: 75 Year
  Sex: Female

DRUGS (4)
  1. LORAZEPAM. [Suspect]
     Active Substance: LORAZEPAM
     Route: 048
  2. XATRAL [Suspect]
     Active Substance: ALFUZOSIN
     Indication: INCONTINENCE
     Route: 048
  3. CLOZAPINE. [Suspect]
     Active Substance: CLOZAPINE
     Route: 048
  4. LITHIUM. [Concomitant]
     Active Substance: LITHIUM

REACTIONS (6)
  - Sopor [Recovering/Resolving]
  - Miosis [Recovering/Resolving]
  - Drug abuse [Unknown]
  - Toxicity to various agents [Unknown]
  - Unresponsive to stimuli [Recovering/Resolving]
  - Urinary incontinence [Unknown]

NARRATIVE: CASE EVENT DATE: 20170728
